FAERS Safety Report 17235075 (Version 1)
Quarter: 2020Q1

REPORT INFORMATION
  Report Type: Spontaneous
  Country: JP (occurrence: JP)
  Receive Date: 20200106
  Receipt Date: 20200106
  Transmission Date: 20200409
  Serious: Yes (Death)
  Sender: FDA-Public Use
  Company Number: JP-ALLERGAN-1953284US

PATIENT
  Sex: Male

DRUGS (3)
  1. ASENAPINE MALEATE - BP [Suspect]
     Active Substance: ASENAPINE MALEATE
     Indication: DELIRIUM
     Dosage: 5 MG, QD
     Route: 060
  2. DIAZEPAM. [Concomitant]
     Active Substance: DIAZEPAM
  3. FENTANYL. [Concomitant]
     Active Substance: FENTANYL

REACTIONS (2)
  - Death [Fatal]
  - Off label use [Unknown]
